FAERS Safety Report 14693419 (Version 1)
Quarter: 2018Q1

REPORT INFORMATION
  Report Type: Report from Study
  Country: CA (occurrence: CA)
  Receive Date: 20180329
  Receipt Date: 20180329
  Transmission Date: 20180509
  Serious: Yes (Hospitalization)
  Sender: FDA-Public Use
  Company Number: PHHO2017CA015415

PATIENT
  Age: 59 Year
  Sex: Female
  Weight: 104 kg

DRUGS (10)
  1. LEE011 [Suspect]
     Active Substance: RIBOCICLIB
     Indication: BREAST CANCER
     Dosage: 600 MG, QD
     Route: 048
     Dates: start: 20171024, end: 20171103
  2. TYLENOL [Concomitant]
     Active Substance: ACETAMINOPHEN
     Indication: PAIN
     Dosage: 8 DF, QD PRN
     Route: 065
     Dates: start: 2003, end: 20171102
  3. MIRTAZAPINE. [Concomitant]
     Active Substance: MIRTAZAPINE
     Indication: DEPRESSION
     Dosage: 63 MG, QD
     Route: 048
     Dates: start: 2013, end: 20171102
  4. LETROZOLE. [Suspect]
     Active Substance: LETROZOLE
     Indication: BREAST CANCER
     Dosage: 2.5 MG, QD
     Route: 048
     Dates: start: 20171024, end: 20171103
  5. HYDROMORPHONE [Suspect]
     Active Substance: HYDROMORPHONE
     Indication: BACK PAIN
     Dosage: (12 MG, BID LONG ACTING AND 2 MG PRN SHORT ACTING)
     Route: 048
     Dates: start: 20171021, end: 20171102
  6. LYRICA [Concomitant]
     Active Substance: PREGABALIN
     Indication: PAIN
     Dosage: 75 MG, BID
     Route: 065
     Dates: start: 201710, end: 20171102
  7. ATIVAN [Concomitant]
     Active Substance: LORAZEPAM
     Indication: ANXIETY
     Dosage: 4 MG, PRN
     Route: 048
     Dates: start: 1997, end: 20171102
  8. LEE011 [Suspect]
     Active Substance: RIBOCICLIB
     Dosage: 600 MG, QD
     Route: 048
     Dates: start: 20171121
  9. LETROZOLE. [Suspect]
     Active Substance: LETROZOLE
     Dosage: 2.5 MG, QD
     Route: 048
     Dates: start: 20171121
  10. DESVENLAFAXINE. [Concomitant]
     Active Substance: DESVENLAFAXINE
     Indication: DEPRESSION
     Dosage: 50 MG, QD
     Route: 048
     Dates: start: 20171015, end: 20171102

REACTIONS (6)
  - Pneumonia [Recovered/Resolved]
  - Confusional state [Recovered/Resolved]
  - Confusional state [Recovered/Resolved]
  - Sepsis [Recovered/Resolved]
  - Delirium [Recovered/Resolved]
  - Somnolence [Not Recovered/Not Resolved]

NARRATIVE: CASE EVENT DATE: 20171103
